FAERS Safety Report 10755097 (Version 1)
Quarter: 2015Q1

REPORT INFORMATION
  Report Type: Spontaneous
  Country: US (occurrence: None)
  Receive Date: 20150130
  Receipt Date: 20150130
  Transmission Date: 20150721
  Serious: Yes (Other)
  Sender: FDA-Public Use
  Company Number: None

PATIENT
  Age: 61 Year
  Sex: Female
  Weight: 52.16 kg

DRUGS (6)
  1. METRONIDAZOLE. [Suspect]
     Active Substance: METRONIDAZOLE
     Route: 048
     Dates: start: 20141231, end: 20150106
  2. CIPROFLOXACIN. [Suspect]
     Active Substance: CIPROFLOXACIN
     Indication: APPENDICITIS
     Route: 048
     Dates: start: 20141231, end: 20150106
  3. METRONIDAZOLE. [Suspect]
     Active Substance: METRONIDAZOLE
     Indication: APPENDICITIS
     Route: 048
     Dates: start: 20141231, end: 20150106
  4. CIPROFLOXACIN. [Suspect]
     Active Substance: CIPROFLOXACIN
     Indication: APPENDICECTOMY
     Route: 048
     Dates: start: 20141231, end: 20150106
  5. CIPROFLOXACIN. [Suspect]
     Active Substance: CIPROFLOXACIN
     Indication: POSTOPERATIVE CARE
     Route: 048
     Dates: start: 20141231, end: 20150106
  6. METRONIDAZOLE. [Suspect]
     Active Substance: METRONIDAZOLE
     Indication: APPENDICECTOMY
     Route: 048
     Dates: start: 20141231, end: 20150106

REACTIONS (13)
  - Urticaria [None]
  - Pain in extremity [None]
  - Groin pain [None]
  - Arthralgia [None]
  - Cognitive disorder [None]
  - Fatigue [None]
  - Impaired driving ability [None]
  - Muscle strain [None]
  - Chills [None]
  - Dysgeusia [None]
  - Pain [None]
  - Night sweats [None]
  - Dry eye [None]

NARRATIVE: CASE EVENT DATE: 20150101
